FAERS Safety Report 9220314 (Version 4)
Quarter: 2013Q2

REPORT INFORMATION
  Report Type: Report from Study
  Country: US (occurrence: US)
  Receive Date: 20130409
  Receipt Date: 20130605
  Transmission Date: 20140414
  Serious: Yes (Hospitalization)
  Sender: FDA-Public Use
  Company Number: US-PFIZER INC-2013107324

PATIENT
  Age: 40 Year
  Sex: Female
  Weight: 104.09 kg

DRUGS (32)
  1. BLINDED CELECOXIB [Suspect]
     Indication: OSTEOARTHRITIS
     Dosage: HIGH, 3X/DAY
     Route: 048
     Dates: start: 20110203, end: 20110222
  2. BLINDED IBUPROFEN [Suspect]
     Indication: OSTEOARTHRITIS
     Dosage: HIGH, 3X/DAY
     Route: 048
     Dates: start: 20110203, end: 20110222
  3. BLINDED IBUPROFEN [Suspect]
     Indication: OSTEOARTHRITIS
     Dosage: HIGH, 3X/DAY
     Route: 048
     Dates: start: 20110203, end: 20110222
  4. BLINDED IBUPROFEN [Suspect]
     Indication: OSTEOARTHRITIS
     Dosage: HIGH, 3X/DAY
     Route: 048
     Dates: start: 20110203, end: 20110222
  5. BLINDED NAPROXEN [Suspect]
     Indication: OSTEOARTHRITIS
     Dosage: HIGH, 3X/DAY
     Route: 048
     Dates: start: 20110203, end: 20110222
  6. BLINDED NAPROXEN [Suspect]
     Indication: OSTEOARTHRITIS
     Dosage: HIGH, 3X/DAY
     Route: 048
     Dates: start: 20110203, end: 20110222
  7. BLINDED NAPROXEN [Suspect]
     Indication: OSTEOARTHRITIS
     Dosage: HIGH, 3X/DAY
     Route: 048
     Dates: start: 20110203, end: 20110222
  8. BLINDED PLACEBO [Suspect]
     Indication: OSTEOARTHRITIS
     Dosage: HIGH, 3X/DAY
     Route: 048
     Dates: start: 20110203, end: 20110222
  9. OXYCODONE HYDROCHLORIDE [Suspect]
     Indication: BACK PAIN
     Dosage: 10 MG, 2X/DAY
     Route: 048
     Dates: start: 20130129, end: 20130209
  10. OXYCODONE HYDROCHLORIDE [Suspect]
     Indication: ARTHRALGIA
  11. VALIUM [Suspect]
     Indication: ANXIETY
     Dosage: 5 MG, QHS
     Route: 048
     Dates: start: 20120410, end: 20130209
  12. VALIUM [Suspect]
     Indication: INSOMNIA
  13. NEXIUM [Concomitant]
     Indication: PROPHYLAXIS
     Dosage: 40 MG, QD
     Route: 048
     Dates: start: 20110520, end: 20110609
  14. CELEXA [Concomitant]
     Indication: ANXIETY
     Dosage: UNK
     Dates: start: 20110706
  15. NEURONTIN [Concomitant]
     Indication: DIABETIC NEUROPATHY
     Dosage: UNK
     Dates: start: 20110704, end: 20130209
  16. SINGULAIR [Concomitant]
     Indication: ASTHMA
     Dosage: UNK
     Dates: start: 20130109, end: 20130209
  17. SINGULAIR [Concomitant]
     Indication: RHINITIS ALLERGIC
  18. CREON 24 [Concomitant]
     Indication: PANCREATITIS RELAPSING
     Dosage: UNK
     Dates: start: 20120405, end: 20130209
  19. TRICOR [Concomitant]
     Indication: HYPERTRIGLYCERIDAEMIA
     Dosage: UNK
     Dates: start: 20120410
  20. VESICARE [Concomitant]
     Indication: HYPERTONIC BLADDER
     Dosage: UNK
     Dates: start: 20130129, end: 20130209
  21. LIDODERM PATCHES [Concomitant]
     Indication: BACK PAIN
     Dosage: UNK
     Dates: start: 20130129, end: 20130209
  22. PRAVACHOL [Concomitant]
     Indication: DYSLIPIDAEMIA
     Dosage: UNK
     Dates: start: 20120418, end: 20130209
  23. LOPID [Concomitant]
     Indication: DYSLIPIDAEMIA
     Dosage: UNK
     Dates: start: 20130129, end: 20130209
  24. TOPROL XL [Concomitant]
     Indication: SINUS TACHYCARDIA
     Dosage: UNK
     Dates: start: 20130127, end: 20130209
  25. TOPROL XL [Concomitant]
     Indication: HYPERTENSION
  26. GLIPIZIDE XL [Concomitant]
     Indication: TYPE 2 DIABETES MELLITUS
     Dosage: UNK
     Dates: start: 20130109, end: 20130209
  27. FLEXERIL [Concomitant]
     Indication: BACK PAIN
     Dosage: UNK
     Dates: start: 20130109
  28. LEVEMIR [Concomitant]
     Indication: TYPE 2 DIABETES MELLITUS
     Dosage: UNK
     Dates: start: 20130126, end: 20130209
  29. HYZAAR [Concomitant]
     Indication: HYPERTENSION
     Dosage: UNK
     Dates: start: 20130129, end: 20130209
  30. K-TAB [Concomitant]
     Indication: MINERAL SUPPLEMENTATION
     Dosage: UNK
     Dates: start: 20130129, end: 20130209
  31. NOVOLOG [Concomitant]
     Indication: TYPE 2 DIABETES MELLITUS
     Dosage: UNK
     Dates: start: 20130129, end: 20130209
  32. VOLTAREN [Concomitant]
     Indication: ARTHRITIS
     Dosage: UNK
     Dates: start: 20130109, end: 20130209

REACTIONS (4)
  - Overdose [Recovered/Resolved]
  - Overdose [Recovered/Resolved]
  - Acute respiratory failure [Recovered/Resolved]
  - Renal failure acute [Recovered/Resolved with Sequelae]
